FAERS Safety Report 8332322-6 (Version None)
Quarter: 2012Q2

REPORT INFORMATION
  Report Type: 
  Country: None (occurrence: None)
  Receive Date: 20120503
  Receipt Date: 20120425
  Transmission Date: 20120825
  Serious: No
  Sender: FDA-Public Use
  Company Number: US-B.I. PHARMACEUTICALS,INC./RIDGEFIELD-2012-BP-09436BP

PATIENT
  Sex: Male

DRUGS (9)
  1. DYAZIDE [Suspect]
     Indication: HYPERTENSION
     Route: 048
     Dates: end: 20120418
  2. VITAMIN D [Concomitant]
     Indication: ROUTINE HEALTH MAINTENANCE
  3. MULTI-VITAMIN [Concomitant]
     Indication: ROUTINE HEALTH MAINTENANCE
  4. PRADAXA [Suspect]
     Indication: ATRIAL FIBRILLATION
     Dosage: 300 MG
     Route: 048
     Dates: start: 20120101
  5. NAPROXEN (ALEVE) [Concomitant]
     Indication: PAIN
  6. LOVAZA [Concomitant]
     Indication: HYPERLIPIDAEMIA
  7. CALCIUM [Concomitant]
     Indication: ROUTINE HEALTH MAINTENANCE
  8. SIMVASTATIN [Concomitant]
     Indication: HYPERLIPIDAEMIA
  9. POTASSIUM CHLORIDE [Concomitant]
     Indication: SUPPLEMENTATION THERAPY

REACTIONS (2)
  - GENERALISED OEDEMA [None]
  - HYPOTENSION [None]
